FAERS Safety Report 10685664 (Version 1)
Quarter: 2014Q4

REPORT INFORMATION
  Report Type: Spontaneous
  Country: US (occurrence: None)
  Receive Date: 20141230
  Receipt Date: 20141230
  Transmission Date: 20150529
  Serious: Yes (Other)
  Sender: FDA-Public Use
  Company Number: None

PATIENT
  Age: 33 Year
  Sex: Female
  Weight: 43.09 kg

DRUGS (2)
  1. OLANZAPINE. [Suspect]
     Active Substance: OLANZAPINE
     Indication: DRUG THERAPY
     Dates: start: 20140314, end: 20140407
  2. OLANZAPINE. [Suspect]
     Active Substance: OLANZAPINE
     Indication: SCHIZOPHRENIA
     Dates: start: 20140314, end: 20140407

REACTIONS (5)
  - Hallucination, auditory [None]
  - Product substitution issue [None]
  - Facial pain [None]
  - Swelling [None]
  - Hypersensitivity [None]

NARRATIVE: CASE EVENT DATE: 20140317
